FAERS Safety Report 6781682-6 (Version None)
Quarter: 2010Q2

REPORT INFORMATION
  Report Type: 
  Country: None (occurrence: None)
  Receive Date: 20100618
  Receipt Date: 20100603
  Transmission Date: 20101027
  Serious: Yes (Hospitalization, Other)
  Sender: FDA-Public Use
  Company Number: 013698

PATIENT
  Sex: Female

DRUGS (6)
  1. OMEPRAZOLE [Suspect]
     Indication: ULCER
     Dosage: 20 MG QD ORAL
     Route: 048
     Dates: start: 20070101, end: 20100318
  2. DEROXAT (DEROXAT) (NOT SPECIFIED) [Suspect]
     Dosage: 10 MG QD, 10MG/D
     Dates: start: 20090930, end: 20100318
  3. ENATEC [Concomitant]
  4. NEURONTIN [Concomitant]
  5. DAFALGAN [Concomitant]
  6. TRAMAL [Concomitant]

REACTIONS (3)
  - CHOLESTATIC LIVER INJURY [None]
  - LIVER DISORDER [None]
  - SYNCOPE [None]
